FAERS Safety Report 20912308 (Version 1)
Quarter: 2022Q2

REPORT INFORMATION
  Report Type: Report from Study
  Country: JP (occurrence: JP)
  Receive Date: 20220603
  Receipt Date: 20220603
  Transmission Date: 20220721
  Serious: Yes (Hospitalization, Other)
  Sender: FDA-Public Use
  Company Number: JP-GSKJP-JP2022JPN064822

PATIENT
  Sex: Female

DRUGS (4)
  1. BOTULINUM TOXIN TYPE A [Suspect]
     Active Substance: BOTULINUM TOXIN TYPE A
     Indication: Hypertonic bladder
     Dosage: 100 UNITS, SINGLE
     Route: 030
     Dates: start: 20210304, end: 20210304
  2. BOTULINUM TOXIN TYPE A [Suspect]
     Active Substance: BOTULINUM TOXIN TYPE A
     Dosage: 100 UNITS, SINGLE
     Route: 030
     Dates: start: 20200824, end: 20200824
  3. CHOREITO [Concomitant]
     Dosage: UNK
  4. FOSMICIN TABLETS [Concomitant]
     Dosage: UNK

REACTIONS (4)
  - Atrial fibrillation [Recovering/Resolving]
  - Cardiac ablation [Recovered/Resolved]
  - Urinary retention [Recovering/Resolving]
  - Herpes zoster [Recovered/Resolved]

NARRATIVE: CASE EVENT DATE: 20201227
